FAERS Safety Report 5064408-6 (Version None)
Quarter: 2006Q3

REPORT INFORMATION
  Report Type: 
  Country: None (occurrence: None)
  Receive Date: 20060728
  Receipt Date: 20060718
  Transmission Date: 20061208
  Serious: Yes (Hospitalization)
  Sender: FDA-Public Use
  Company Number: US-BRISTOL-MYERS SQUIBB COMPANY-13444831

PATIENT
  Age: 80 Year
  Sex: Female

DRUGS (10)
  1. METFORMIN [Suspect]
     Indication: DIABETES MELLITUS
     Route: 048
     Dates: start: 19980101, end: 20060213
  2. GLYBURIDE [Suspect]
     Indication: DIABETES MELLITUS
     Route: 048
     Dates: start: 19850101
  3. HYDROCHLOROTHIAZIDE [Suspect]
     Indication: HYPERTENSION
     Route: 048
     Dates: start: 20050501
  4. DONEPEZIL HCL [Concomitant]
     Indication: COGNITIVE DISORDER
     Route: 048
     Dates: start: 20051011
  5. PLACEBO [Concomitant]
     Indication: COGNITIVE DISORDER
     Route: 048
     Dates: start: 20051011
  6. GEMFIBROZIL [Concomitant]
     Indication: HYPERCHOLESTEROLAEMIA
     Route: 048
     Dates: start: 20050501
  7. ASPIRIN [Concomitant]
     Indication: CARDIOVASCULAR EVENT PROPHYLAXIS
     Route: 048
     Dates: start: 20020101
  8. VITAMIN E [Concomitant]
     Indication: ROUTINE HEALTH MAINTENANCE
     Route: 048
     Dates: start: 20000101
  9. MULTI-VITAMIN [Concomitant]
     Indication: ROUTINE HEALTH MAINTENANCE
     Route: 048
     Dates: start: 19950101
  10. GARLIC [Concomitant]
     Indication: ROUTINE HEALTH MAINTENANCE
     Route: 048
     Dates: start: 20000101

REACTIONS (10)
  - ATRIAL FIBRILLATION [None]
  - BACK PAIN [None]
  - CHILLS [None]
  - DEHYDRATION [None]
  - HYPERTHYROIDISM [None]
  - HYPOGLYCAEMIA [None]
  - INSOMNIA [None]
  - LOBAR PNEUMONIA [None]
  - SEPSIS [None]
  - VOMITING [None]
